FAERS Safety Report 6419223-5 (Version None)
Quarter: 2009Q4

REPORT INFORMATION
  Report Type: 
  Country: None (occurrence: None)
  Receive Date: 20091028
  Receipt Date: 20091028
  Transmission Date: 20100525
  Serious: Yes (Hospitalization)
  Sender: FDA-Public Use
  Company Number: None

PATIENT
  Sex: Male
  Weight: 102.7 kg

DRUGS (5)
  1. TAXOTERE [Suspect]
     Dosage: 120 MG
  2. PREDNISONE [Suspect]
     Dosage: 160 MG
  3. ATENOLOL [Concomitant]
  4. ENALAPRIL [Concomitant]
  5. MAXZIDE [Concomitant]

REACTIONS (3)
  - FOOT FRACTURE [None]
  - HYPOTENSION [None]
  - SYNCOPE [None]
